FAERS Safety Report 24667579 (Version 1)
Quarter: 2024Q4

REPORT INFORMATION
  Report Type: Report from Study
  Country: CA (occurrence: CA)
  Receive Date: 20241126
  Receipt Date: 20241126
  Transmission Date: 20250115
  Serious: No
  Sender: ABBVIE
  Company Number: CA-ABBVIE-5944262

PATIENT
  Age: 63 Year
  Sex: Female

DRUGS (2)
  1. RINVOQ [Suspect]
     Active Substance: UPADACITINIB
     Indication: Colitis ulcerative
     Dosage: FORM STRENGTH:30MG
     Route: 048
     Dates: start: 20240727
  2. RINVOQ [Suspect]
     Active Substance: UPADACITINIB
     Indication: Colitis ulcerative
     Route: 048
     Dates: start: 2024

REACTIONS (4)
  - Vitreous floaters [Unknown]
  - Headache [Unknown]
  - Weight increased [Unknown]
  - Acne [Unknown]

NARRATIVE: CASE EVENT DATE: 20240101
